FAERS Safety Report 15788186 (Version 1)
Quarter: 2019Q1

REPORT INFORMATION
  Report Type: Report from Study
  Country: BE (occurrence: BE)
  Receive Date: 20190104
  Receipt Date: 20190104
  Transmission Date: 20190417
  Serious: Yes (Hospitalization)
  Sender: FDA-Public Use
  Company Number: BE-CELLTRION INC.-2018BE024906

PATIENT

DRUGS (3)
  1. INFLECTRA [Suspect]
     Active Substance: INFLIXIMAB-DYYB
     Indication: INFLAMMATORY BOWEL DISEASE
     Dosage: 5 MG/KG EVERY 8 WEEKS
     Route: 065
     Dates: start: 20170406
  2. EMCONCOR [Concomitant]
     Active Substance: BISOPROLOL FUMARATE
     Indication: MIGRAINE
     Dosage: 5 MG, DAILY
     Route: 048
     Dates: start: 20130228
  3. SERTRALINE [Concomitant]
     Active Substance: SERTRALINE HYDROCHLORIDE
     Indication: DEPRESSION
     Dosage: 100 MG, DAILY
     Route: 048
     Dates: start: 2018

REACTIONS (1)
  - Rotator cuff syndrome [Recovered/Resolved with Sequelae]

NARRATIVE: CASE EVENT DATE: 20181002
